FAERS Safety Report 24529549 (Version 4)
Quarter: 2025Q4

REPORT INFORMATION
  Report Type: Report from Study
  Country: EU (occurrence: EU)
  Receive Date: 20241021
  Receipt Date: 20251023
  Transmission Date: 20260118
  Serious: Yes (Hospitalization)
  Sender: ROCHE
  Company Number: EU-ROCHE-10000110012

PATIENT
  Age: 22 Year
  Sex: Female
  Weight: 70 kg

DRUGS (11)
  1. OCRELIZUMAB [Suspect]
     Active Substance: OCRELIZUMAB
     Indication: Relapsing-remitting multiple sclerosis
     Dosage: DOSE LAST STUDY DRUG ADMIN PRIOR AE IS 600 MG?DOSE LAST STUDY DRUG ADMIN PRIOR SAE IS 600 MG?TOTAL V
     Route: 042
     Dates: start: 20210212
  2. OCRELIZUMAB [Suspect]
     Active Substance: OCRELIZUMAB
     Dosage: DOSE LAST STUDY DRUG ADMIN PRIOR AE IS 600 MG?DOSE LAST STUDY DRUG ADMIN PRIOR SAE IS 600 MG
     Route: 042
     Dates: start: 20210226
  3. OCRELIZUMAB [Suspect]
     Active Substance: OCRELIZUMAB
     Route: 042
     Dates: start: 20210817
  4. OCRELIZUMAB [Suspect]
     Active Substance: OCRELIZUMAB
     Dosage: SUBSEQUENT DOSE ON 17-AUG-2022. 15-FEB-2023, 24-AUG-2023, 26-FEB-2024, 21-AUG-2024.
     Route: 042
     Dates: start: 20220224, end: 20220224
  5. OCRELIZUMAB [Suspect]
     Active Substance: OCRELIZUMAB
     Dosage: SUBSEQUENT DOSE ON 17-AUG-2022. 15-FEB-2023, 24-AUG-2023, 26-FEB-2024, 21-AUG-2024.
     Route: 042
     Dates: start: 20250505, end: 20250505
  6. OCRELIZUMAB [Suspect]
     Active Substance: OCRELIZUMAB
     Route: 042
     Dates: start: 20240821, end: 20240821
  7. OCRELIZUMAB [Suspect]
     Active Substance: OCRELIZUMAB
     Route: 042
     Dates: start: 20230215, end: 20230215
  8. OCRELIZUMAB [Suspect]
     Active Substance: OCRELIZUMAB
     Route: 042
     Dates: start: 20220817, end: 20220817
  9. OCRELIZUMAB [Suspect]
     Active Substance: OCRELIZUMAB
     Dosage: TOTAL VOLUME ADMINISTERED (ML): 500
     Route: 042
     Dates: start: 20230824, end: 20230824
  10. OCRELIZUMAB [Suspect]
     Active Substance: OCRELIZUMAB
     Route: 042
     Dates: start: 20240226, end: 20240226
  11. OCRELIZUMAB [Suspect]
     Active Substance: OCRELIZUMAB
     Route: 042
     Dates: start: 20210212, end: 20210212

REACTIONS (1)
  - Pyelonephritis acute [Recovered/Resolved]

NARRATIVE: CASE EVENT DATE: 20240407
